FAERS Safety Report 22967003 (Version 2)
Quarter: 2023Q4

REPORT INFORMATION
  Report Type: Spontaneous
  Country: JP (occurrence: JP)
  Receive Date: 20230921
  Receipt Date: 20231013
  Transmission Date: 20240110
  Serious: Yes (Other)
  Sender: FDA-Public Use
  Company Number: JP-AMGEN-JPNSP2023113083

PATIENT
  Sex: Female

DRUGS (3)
  1. BLINCYTO [Suspect]
     Active Substance: BLINATUMOMAB
     Indication: B precursor type acute leukaemia
     Dosage: 9 MICROGRAM, 24-HOUR CONTINUOUS INTRAVENOUS DRIP INFUSION
     Route: 042
     Dates: start: 20230626, end: 2023
  2. BLINCYTO [Suspect]
     Active Substance: BLINATUMOMAB
     Dosage: 28 MICROGRAM, QD, 24 HOUR CONTINIOUS (DOSE INCREASED)(DRIP INFUSION)
     Route: 042
     Dates: start: 20230703, end: 2023
  3. BLINCYTO [Suspect]
     Active Substance: BLINATUMOMAB
     Dosage: 28 MICROGRAM, QD 24-HOUR CONTINUOUS INTRAVENOUS DRIP INFUSION
     Route: 042
     Dates: start: 202308

REACTIONS (4)
  - Herpes zoster [Recovered/Resolved]
  - Cytokine release syndrome [Recovered/Resolved]
  - Neuralgia [Not Recovered/Not Resolved]
  - Blood immunoglobulin G decreased [Unknown]

NARRATIVE: CASE EVENT DATE: 20230101
